FAERS Safety Report 8472454-5 (Version None)
Quarter: 2012Q2

REPORT INFORMATION
  Report Type: 
  Country: None (occurrence: None)
  Receive Date: 20120627
  Receipt Date: 20111116
  Transmission Date: 20120825
  Serious: Yes (Other)
  Sender: FDA-Public Use
  Company Number: US-AMGEN-USASP2011052780

PATIENT
  Age: 17 Year
  Sex: Female
  Weight: 48 kg

DRUGS (20)
  1. EPOGEN [Suspect]
     Dosage: 12000 IU, 3 TIMES/WK
     Route: 058
     Dates: start: 20110610
  2. EPOGEN [Suspect]
     Dosage: 160000 IU, 3 TIMES/WK
     Route: 058
     Dates: start: 20110824
  3. FLUTICASONE PROPIONATE/SALMETEROL [Concomitant]
  4. NIFEDIPINE [Concomitant]
  5. CEFUROXIME [Concomitant]
  6. CALCITRIOL [Concomitant]
  7. ESOMEPRAZOLE [Concomitant]
  8. ALBUTEROL [Concomitant]
  9. MULTI-VITAMINS [Concomitant]
  10. SODIUM BICARBONATE [Concomitant]
  11. EPOGEN [Suspect]
     Dosage: 14000 IU, 3 TIMES/WK
     Route: 058
     Dates: start: 20110719
  12. EPOGEN [Suspect]
     Dosage: 20000 IU, 3 TIMES/WK
     Route: 058
     Dates: start: 20110924
  13. IRON POLYSACCHARIDE [Concomitant]
  14. MYCOPHENOLATMOFETIL ACTAVIS [Concomitant]
  15. EPOGEN [Suspect]
     Indication: ANAEMIA
     Dosage: UNK
     Dates: end: 20050928
  16. EPOGEN [Suspect]
     Dosage: 5000 IU, QWK
     Route: 058
     Dates: start: 20100112
  17. FUROSEMIDE [Concomitant]
  18. CALCIUM CARBONATE [Concomitant]
  19. PREDNISONE TAB [Concomitant]
  20. SULFAMETHOXAZOLE AND TRIMETHOPRIM [Concomitant]

REACTIONS (3)
  - COUGH [None]
  - DRUG INEFFECTIVE [None]
  - APLASIA PURE RED CELL [None]
